FAERS Safety Report 26107776 (Version 1)
Quarter: 2025Q4

REPORT INFORMATION
  Report Type: Spontaneous
  Country: US (occurrence: None)
  Receive Date: 20251128
  Receipt Date: 20251128
  Transmission Date: 20260118
  Serious: Yes (Hospitalization)
  Sender: FDA-CTU
  Company Number: None

PATIENT
  Age: 69 Year
  Sex: Male

DRUGS (11)
  1. LENALIDOMIDE [Suspect]
     Active Substance: LENALIDOMIDE
     Indication: Plasma cell myeloma
     Route: 048
     Dates: start: 20250610
  2. ALFUZOSIN TAB 10MG ER [Concomitant]
  3. AMITRIPTYLIN TAB 50MG [Concomitant]
  4. ASPIRIN LOW TAB 81MG EC [Concomitant]
  5. ATORVASTATIN TAB 80MG [Concomitant]
  6. BENAZEPRIL TAB 10MG [Concomitant]
  7. BISACODYL TAB 5MG EC [Concomitant]
  8. CALCIUM/D3  CHW 250/12.5 [Concomitant]
  9. CEFDINIR [Concomitant]
     Active Substance: CEFDINIR
  10. CYCLOBENZAPR TAB 10MG [Concomitant]
  11. DICYCLOMINE CAP 10MG [Concomitant]

REACTIONS (4)
  - Subarachnoid haemorrhage [None]
  - Fall [None]
  - Chest injury [None]
  - Skin abrasion [None]

NARRATIVE: CASE EVENT DATE: 20250531
